FAERS Safety Report 8791279 (Version 1)
Quarter: 2012Q4

REPORT INFORMATION
  Report Type: Spontaneous
  Country: US (occurrence: None)
  Receive Date: 20120914
  Receipt Date: 20120914
  Transmission Date: 20130627
  Serious: Yes (Hospitalization)
  Sender: FDA-Public Use
  Company Number: None

PATIENT
  Age: 64 Year
  Sex: Male
  Weight: 97.9 kg

DRUGS (1)
  1. DENOSUMAB [Suspect]
     Indication: METASTASES TO BONE
     Route: 058
     Dates: start: 20120907, end: 20120910

REACTIONS (5)
  - Hypocalcaemia [None]
  - Vision blurred [None]
  - Arthralgia [None]
  - Dizziness [None]
  - Muscle spasms [None]
